FAERS Safety Report 5571262-2 (Version None)
Quarter: 2007Q4

REPORT INFORMATION
  Report Type: 
  Country: None (occurrence: None)
  Receive Date: 20071221
  Receipt Date: 20070403
  Transmission Date: 20080405
  Serious: No
  Sender: FDA-Public Use
  Company Number: A0645799A

PATIENT
  Age: 71 Year
  Sex: Female

DRUGS (5)
  1. FLONASE [Suspect]
     Dosage: 1SPR PER DAY
     Route: 045
     Dates: start: 19960101, end: 20070201
  2. SYNTHROID [Concomitant]
  3. SINGULAIR [Concomitant]
  4. ALBUTEROL [Concomitant]
  5. FLOVENT [Concomitant]

REACTIONS (4)
  - ALOPECIA [None]
  - DRY SKIN [None]
  - EPISTAXIS [None]
  - SKIN EXFOLIATION [None]
